FAERS Safety Report 14454360 (Version 1)
Quarter: 2018Q1

REPORT INFORMATION
  Report Type: Spontaneous
  Country: US (occurrence: US)
  Receive Date: 20180129
  Receipt Date: 20180129
  Transmission Date: 20180509
  Serious: No
  Sender: FDA-Public Use
  Company Number: US-PERRIGO-17US027971

PATIENT
  Age: 36 Year
  Sex: Female
  Weight: 52.15 kg

DRUGS (1)
  1. TRETINOIN. [Suspect]
     Active Substance: TRETINOIN
     Indication: ACNE
     Dosage: SMALL AMOUNT, PERIODICALLY
     Route: 061
     Dates: start: 2015, end: 201708

REACTIONS (9)
  - Dizziness [Recovering/Resolving]
  - Hypervitaminosis [Recovering/Resolving]
  - Visual impairment [Recovering/Resolving]
  - Anxiety [Recovering/Resolving]
  - Photophobia [Recovering/Resolving]
  - Nausea [Recovering/Resolving]
  - Vomiting [Recovering/Resolving]
  - Headache [Recovering/Resolving]
  - Inappropriate schedule of drug administration [Recovered/Resolved]

NARRATIVE: CASE EVENT DATE: 2015
